FAERS Safety Report 9882623 (Version 1)
Quarter: 2014Q1

REPORT INFORMATION
  Report Type: Spontaneous
  Country: US (occurrence: US)
  Receive Date: 20140207
  Receipt Date: 20140207
  Transmission Date: 20141002
  Serious: Yes (Hospitalization)
  Sender: FDA-Public Use
  Company Number: US-NAPPMUNDI-USA-2011-0078382

PATIENT
  Age: 81 Year
  Sex: Female

DRUGS (3)
  1. OXYCODONE HCL TABLETS (91-490) [Suspect]
     Indication: PRODUCT USED FOR UNKNOWN INDICATION
  2. OXYCONTIN TABLETS [Suspect]
     Indication: PAIN
     Dosage: 60 MG, UNK
  3. AMBIEN [Concomitant]
     Indication: PRODUCT USED FOR UNKNOWN INDICATION

REACTIONS (3)
  - Accidental overdose [Unknown]
  - Wrong drug administered [Unknown]
  - Loss of consciousness [Unknown]
